FAERS Safety Report 4331088-4 (Version None)
Quarter: 2004Q1

REPORT INFORMATION
  Report Type: 
  Country: None (occurrence: None)
  Receive Date: 20040331
  Receipt Date: 20040318
  Transmission Date: 20041129
  Serious: Yes (Other)
  Sender: FDA-Public Use
  Company Number: USA-2004-0013924

PATIENT
  Age: 14 Year
  Sex: Female

DRUGS (1)
  1. SPECTRACEF [Suspect]
     Indication: SINUSITIS
     Dosage: 200 MG, BID, ORAL
     Route: 048
     Dates: start: 20040201, end: 20040301

REACTIONS (4)
  - OFF LABEL USE [None]
  - POLYARTHRITIS [None]
  - SERUM SICKNESS [None]
  - URTICARIA [None]
